FAERS Safety Report 15248441 (Version 1)
Quarter: 2018Q3

REPORT INFORMATION
  Report Type: Spontaneous
  Country: US (occurrence: US)
  Receive Date: 20180807
  Receipt Date: 20180807
  Transmission Date: 20181010
  Serious: No
  Sender: FDA-Public Use
  Company Number: US-009507513-1808USA001358

PATIENT
  Sex: Female

DRUGS (12)
  1. INTRON A [Suspect]
     Active Substance: INTERFERON ALFA-2B
     Indication: PERIPHERAL T-CELL LYMPHOMA UNSPECIFIED
     Dosage: 0.25 ML (1.5 MU) 3 TIMES A WEEK
     Route: 058
  2. BIOTIN [Concomitant]
     Active Substance: BIOTIN
     Dosage: 7500 MCG
  3. BENZONATATE. [Concomitant]
     Active Substance: BENZONATATE
  4. LANSOPRAZOLE. [Concomitant]
     Active Substance: LANSOPRAZOLE
  5. APAP [Concomitant]
     Active Substance: ACETAMINOPHEN
  6. OXYCOD [Concomitant]
  7. CENTRUM SILVER [Concomitant]
     Active Substance: MINERALS\VITAMINS
  8. PROPRANOLOL [Concomitant]
     Active Substance: PROPRANOLOL HYDROCHLORIDE
  9. PREDNISONE. [Concomitant]
     Active Substance: PREDNISONE
  10. ATORVASTATIN [Concomitant]
     Active Substance: ATORVASTATIN
  11. FENOFIBRATE. [Concomitant]
     Active Substance: FENOFIBRATE
  12. FLUOXETIN [Concomitant]
     Active Substance: FLUOXETINE HYDROCHLORIDE

REACTIONS (2)
  - Skin depigmentation [Not Recovered/Not Resolved]
  - Drug ineffective [Not Recovered/Not Resolved]
